FAERS Safety Report 23365103 (Version 1)
Quarter: 2024Q1

REPORT INFORMATION
  Report Type: Other
  Country: FR (occurrence: FR)
  Receive Date: 20240104
  Receipt Date: 20240104
  Transmission Date: 20240409
  Serious: Yes (Death)
  Sender: FDA-Public Use
  Company Number: None

PATIENT

DRUGS (4)
  1. BISOPROLOL [Suspect]
     Active Substance: BISOPROLOL\BISOPROLOL FUMARATE
     Indication: Anomalous atrioventricular excitation
     Dosage: 7.5 MILLIGRAM, QD
     Route: 065
     Dates: start: 20231128
  2. SPIRONOLACTONE [Suspect]
     Active Substance: SPIRONOLACTONE
     Indication: Left ventricular failure
     Dosage: 25 MILLIGRAM, QD
     Route: 048
     Dates: start: 20160315
  3. PERINDOPRIL [Suspect]
     Active Substance: PERINDOPRIL
     Indication: Left ventricular failure
     Dosage: 10 MILLIGRAM, QD
     Route: 048
     Dates: start: 20151115
  4. CORGARD [Suspect]
     Active Substance: NADOLOL
     Indication: Anomalous atrioventricular excitation
     Dosage: 40 MILLIGRAM, QD
     Route: 065
     Dates: start: 20171206, end: 20231127

REACTIONS (2)
  - Death [Fatal]
  - Product availability issue [Fatal]

NARRATIVE: CASE EVENT DATE: 20231128
